FAERS Safety Report 9862272 (Version 1)
Quarter: 2014Q1

REPORT INFORMATION
  Report Type: Spontaneous
  Country: US (occurrence: US)
  Receive Date: 20140203
  Receipt Date: 20140203
  Transmission Date: 20141002
  Serious: Yes (Other)
  Sender: FDA-Public Use
  Company Number: US-JNJFOC-20140117091

PATIENT
  Age: 63 Year
  Sex: Female
  Weight: 101.15 kg

DRUGS (8)
  1. XARELTO [Suspect]
     Indication: THROMBOSIS PROPHYLAXIS
     Route: 048
     Dates: start: 201401
  2. BUMETANIDE [Concomitant]
     Route: 065
  3. GLIMEPIRIDE [Concomitant]
     Route: 065
  4. LEVOTHYROXINE [Concomitant]
     Route: 065
  5. LIPITOR [Concomitant]
     Route: 065
  6. LISINOPRIL [Concomitant]
     Route: 065
  7. ZOLOFT [Concomitant]
     Route: 065
  8. METFORMIN [Concomitant]
     Route: 065

REACTIONS (2)
  - Joint swelling [Unknown]
  - Arthralgia [Unknown]
